FAERS Safety Report 17404307 (Version 5)
Quarter: 2021Q1

REPORT INFORMATION
  Report Type: Report from Study
  Country: US (occurrence: US)
  Receive Date: 20200211
  Receipt Date: 20210331
  Transmission Date: 20210419
  Serious: Yes (Hospitalization)
  Sender: FDA-Public Use
  Company Number: US-VERTEX PHARMACEUTICALS-2020-002305

PATIENT
  Age: 29 Year
  Sex: Male
  Weight: 68 kg

DRUGS (24)
  1. AZITHROMYCIN ANHYDROUS. [Concomitant]
     Active Substance: AZITHROMYCIN ANHYDROUS
     Indication: CYSTIC FIBROSIS LUNG
     Dosage: 500 MG, THRICE A WEEK (M?W?F)
     Route: 048
     Dates: start: 20090318, end: 20200131
  2. ADVAIR HFA [Concomitant]
     Active Substance: FLUTICASONE PROPIONATE\SALMETEROL XINAFOATE
     Indication: CYSTIC FIBROSIS LUNG
     Dosage: 250?50 MCG, BID
     Dates: start: 20070801
  3. CLARITIN [CLARITHROMYCIN] [Concomitant]
     Active Substance: CLARITHROMYCIN
     Indication: SEASONAL ALLERGY
     Dosage: 10 MG, QD
     Route: 048
     Dates: start: 20120518
  4. LIDOCAINE. [Concomitant]
     Active Substance: LIDOCAINE
     Indication: BACK PAIN
     Dosage: 20 MG 1X
     Route: 042
     Dates: start: 20200206, end: 20200206
  5. ZADITOR [KETOTIFEN] [Concomitant]
     Indication: SEASONAL ALLERGY
     Dosage: 4 DROPS PRN
     Route: 031
     Dates: start: 20190423
  6. HUMALOG [Concomitant]
     Active Substance: INSULIN LISPRO
     Indication: CYSTIC FIBROSIS RELATED DIABETES
     Dosage: 2 UNITS, QD
     Route: 058
     Dates: start: 20200203, end: 20200203
  7. FLONASE [Concomitant]
     Active Substance: FLUTICASONE PROPIONATE
     Indication: SEASONAL ALLERGY
     Dosage: 50 MICROGRAM, BID
     Route: 045
     Dates: start: 20121005
  8. CREON [Concomitant]
     Active Substance: PANCRELIPASE AMYLASE\PANCRELIPASE LIPASE\PANCRELIPASE PROTEASE
     Indication: PANCREATIC FAILURE
     Dosage: 7 DF TID WITH MEALS, 3?4DF WITH SNACKS
     Route: 048
     Dates: start: 20070801
  9. SINGULAIR [Concomitant]
     Active Substance: MONTELUKAST SODIUM
     Indication: SEASONAL ALLERGY
     Dosage: 10 MG, QD
     Route: 048
     Dates: start: 20080103
  10. LIDOCAINE. [Concomitant]
     Active Substance: LIDOCAINE
     Indication: COLONOSCOPY
     Dosage: 2?5 %, PRN
     Route: 061
     Dates: start: 20170301
  11. PROTONIX [OMEPRAZOLE] [Concomitant]
     Active Substance: OMEPRAZOLE
     Indication: GASTROOESOPHAGEAL REFLUX DISEASE
     Dosage: 20 MG, BID
     Route: 048
     Dates: start: 20200202, end: 20200207
  12. PULMOZYME [Concomitant]
     Active Substance: DORNASE ALFA
     Indication: CYSTIC FIBROSIS LUNG
     Dosage: 2.5 MG, QD
     Route: 055
     Dates: start: 20070801
  13. OMEPRAZOLE. [Concomitant]
     Active Substance: OMEPRAZOLE
     Dosage: 20?40MG, QD
     Route: 048
     Dates: start: 20190201, end: 20200131
  14. OMEPRAZOLE. [Concomitant]
     Active Substance: OMEPRAZOLE
     Dosage: 20?40 MG QD
     Route: 048
     Dates: start: 20200208
  15. ADVIL 12HOUR [Concomitant]
     Active Substance: IBUPROFEN
     Indication: PROCTALGIA
     Dosage: 600 MG, PRN
     Route: 048
     Dates: start: 20200127, end: 20200131
  16. VX?445/VX?661/VX?770 [Suspect]
     Active Substance: ELEXACAFTOR\IVACAFTOR\TEZACAFTOR
     Indication: CYSTIC FIBROSIS
     Dosage: 100MG, QD,VX445/ 50MG, QD, TEZ/  75MG, QD, IVA/ 150MG, QD, IVA
     Route: 048
     Dates: start: 20191227
  17. MIRALAX [Concomitant]
     Active Substance: POLYETHYLENE GLYCOL 3350
     Indication: ABDOMINAL PAIN UPPER
     Dosage: 17G, BID
     Route: 048
     Dates: start: 20190128
  18. AZITHROMYCIN ANHYDROUS. [Concomitant]
     Active Substance: AZITHROMYCIN ANHYDROUS
     Dosage: 500 MG MWF
     Route: 048
     Dates: start: 20200210
  19. ALLEVESS [Concomitant]
     Active Substance: CAPSAICIN\MENTHOL
     Indication: BACK PAIN
     Dosage: 220 MG, PRN
     Route: 048
     Dates: start: 20181008
  20. BENADRYL [Concomitant]
     Active Substance: DIPHENHYDRAMINE HYDROCHLORIDE
     Indication: RASH
     Dosage: 25 MG, QD
     Route: 048
     Dates: start: 20200202, end: 20200202
  21. ALBUTEROL [SALBUTAMOL] [Concomitant]
     Active Substance: ALBUTEROL
     Indication: CYSTIC FIBROSIS LUNG
     Dosage: 180 MICROGRAM, TID
     Route: 055
     Dates: start: 20111226
  22. ADDERALL [Concomitant]
     Active Substance: AMPHETAMINE ASPARTATE\AMPHETAMINE SULFATE\DEXTROAMPHETAMINE SACCHARATE\DEXTROAMPHETAMINE SULFATE
     Indication: ATTENTION DEFICIT HYPERACTIVITY DISORDER
     Dosage: 20 MG, QD
     Route: 048
     Dates: start: 20100318
  23. LIDOCAINE. [Concomitant]
     Active Substance: LIDOCAINE
     Indication: PROCTALGIA
     Dosage: 1.5% PRN
     Route: 061
     Dates: start: 20200213
  24. ADVIL 12HOUR [Concomitant]
     Active Substance: IBUPROFEN
     Dosage: 400?800 MG PRN
     Route: 048
     Dates: start: 20200207

REACTIONS (1)
  - Proctitis [Recovered/Resolved]

NARRATIVE: CASE EVENT DATE: 20200131
